FAERS Safety Report 23851554 (Version 2)
Quarter: 2024Q2

REPORT INFORMATION
  Report Type: Spontaneous
  Country: AU (occurrence: AU)
  Receive Date: 20240514
  Receipt Date: 20240619
  Transmission Date: 20240716
  Serious: Yes (Hospitalization)
  Sender: FDA-Public Use
  Company Number: AU-HALEON-2173523

PATIENT
  Age: 4 Month
  Sex: Female

DRUGS (1)
  1. PANADOL [Suspect]
     Active Substance: ACETAMINOPHEN
     Indication: Product used for unknown indication
     Dosage: UNK

REACTIONS (6)
  - Choking [Recovered/Resolved]
  - Brief resolved unexplained event [Recovered/Resolved]
  - Feeling abnormal [Recovered/Resolved]
  - Foaming at mouth [Recovered/Resolved]
  - Respiratory arrest [Recovered/Resolved]
  - Gait disturbance [Recovered/Resolved]
